FAERS Safety Report 5065434-3 (Version None)
Quarter: 2006Q3

REPORT INFORMATION
  Report Type: 
  Country: None (occurrence: None)
  Receive Date: 20060707
  Receipt Date: 20051025
  Transmission Date: 20061208
  Serious: Yes (Other)
  Sender: FDA-Public Use
  Company Number: SUS1-2005-00793

PATIENT
  Age: 64 Year
  Sex: Female

DRUGS (8)
  1. MESALAMINE [Suspect]
     Dosage: INTRAVENOUS
     Route: 042
  2. ZOPONEX(CLOZAPINE) [Suspect]
     Dosage: ORAL
     Route: 048
     Dates: start: 20050720, end: 20050930
  3. ZOPONEX(CLOZAPINE) [Suspect]
     Dosage: ORAL
     Route: 048
     Dates: start: 20050720
  4. VALPROATE SODIUM [Suspect]
     Indication: AFFECTIVE DISORDER
     Dosage: 800 MG DAILY, ORAL
     Route: 048
  5. HYOSCINE HBR HYT [Suspect]
     Indication: SALIVARY HYPERSECRETION
     Dosage: 600 MG DAILY, ORAL
     Route: 048
  6. IBUPROFEN [Suspect]
     Dosage: 500 MG DAILY, ORAL
     Route: 048
  7. BECLOMETHASONE DIPROPIONATE [Concomitant]
  8. PROCYCLIDINE HYDROCHLORIDE 2MG TAB [Concomitant]

REACTIONS (2)
  - LEUKOPENIA [None]
  - NEUTROPHIL COUNT DECREASED [None]
